FAERS Safety Report 5848482-2 (Version None)
Quarter: 2008Q3

REPORT INFORMATION
  Report Type: 
  Country: None (occurrence: None)
  Receive Date: 20080815
  Receipt Date: 20080815
  Transmission Date: 20090109
  Serious: Yes (Other)
  Sender: FDA-Public Use
  Company Number: None

PATIENT
  Age: 32 Year
  Sex: Female
  Weight: 51.2565 kg

DRUGS (1)
  1. MYOBLOC [Suspect]
     Indication: TORTICOLLIS
     Dates: start: 20080206, end: 20080206

REACTIONS (6)
  - DYSPNOEA [None]
  - GASTROINTESTINAL DISORDER [None]
  - HYPOTONIA [None]
  - IMPAIRED WORK ABILITY [None]
  - INFLUENZA LIKE ILLNESS [None]
  - RASH GENERALISED [None]
